FAERS Safety Report 6397791-X (Version None)
Quarter: 2009Q4

REPORT INFORMATION
  Report Type: 
  Country: None (occurrence: None)
  Receive Date: 20091007
  Receipt Date: 20090922
  Transmission Date: 20100525
  Serious: Yes (Death, Hospitalization, Other)
  Sender: FDA-Public Use
  Company Number: 2009AP003879

PATIENT
  Age: 67 Year
  Sex: Female

DRUGS (1)
  1. AMIODARONE HCL [Suspect]

REACTIONS (6)
  - ASTERIXIS [None]
  - CARDIOPULMONARY FAILURE [None]
  - CONFUSIONAL STATE [None]
  - DRUG TOXICITY [None]
  - HEPATIC CIRRHOSIS [None]
  - HEPATIC STEATOSIS [None]
